FAERS Safety Report 8235484-4 (Version None)
Quarter: 2012Q1

REPORT INFORMATION
  Report Type: 
  Country: None (occurrence: None)
  Receive Date: 20120326
  Receipt Date: 20120320
  Transmission Date: 20120608
  Serious: No
  Sender: FDA-Public Use
  Company Number: US-PFIZER INC-2012022813

PATIENT

DRUGS (4)
  1. LYRICA [Suspect]
     Dosage: 25 MG, 1X/DAY
     Route: 048
  2. PREMARIN [Suspect]
     Dosage: UNK
  3. PREDNISONE [Concomitant]
     Dosage: 5 MG, 1X/DAY
  4. METHOTREXATE [Concomitant]
     Dosage: 250MG/10ML, 0.4 ML SC QWK
     Route: 058

REACTIONS (1)
  - ARTHRALGIA [None]
